FAERS Safety Report 9255866 (Version 1)
Quarter: 2013Q2

REPORT INFORMATION
  Report Type: Spontaneous
  Country: ES (occurrence: ES)
  Receive Date: 20130425
  Receipt Date: 20130425
  Transmission Date: 20140414
  Serious: Yes (Death)
  Sender: FDA-Public Use
  Company Number: ES-B.I. PHARMACEUTICALS,INC./RIDGEFIELD-2013-ES-00194ES

PATIENT
  Age: 81 Year
  Sex: Male

DRUGS (4)
  1. PRADAXA [Suspect]
     Indication: ATRIAL FIBRILLATION
     Dosage: 150 MG
     Route: 048
     Dates: start: 20130121
  2. OMEPRAZOL [Concomitant]
     Route: 048
     Dates: start: 20130114
  3. ATENOLOL [Concomitant]
     Indication: HYPERTENSION
     Dosage: 100 MG
     Route: 048
     Dates: start: 2004
  4. DUODART [Concomitant]
     Indication: BENIGN PROSTATIC HYPERPLASIA
     Dosage: STRENGTH:0.5/0.4MG. DAILY DOSE: 1 DF
     Route: 048
     Dates: start: 20130114

REACTIONS (1)
  - Sudden death [Fatal]
